FAERS Safety Report 16863315 (Version 2)
Quarter: 2019Q4

REPORT INFORMATION
  Report Type: Report from Study
  Country: US (occurrence: US)
  Receive Date: 20190927
  Receipt Date: 20191001
  Transmission Date: 20200122
  Serious: Yes (Hospitalization)
  Sender: FDA-Public Use
  Company Number: US-HORIZON-KRY-0688-2019

PATIENT
  Age: 75 Year
  Sex: Female

DRUGS (3)
  1. COLCHICINE. [Concomitant]
     Active Substance: COLCHICINE
  2. XANAX [Concomitant]
     Active Substance: ALPRAZOLAM
  3. KRYSTEXXA [Suspect]
     Active Substance: PEGLOTICASE
     Indication: PRODUCT USED FOR UNKNOWN INDICATION
     Dosage: 8MG IV Q 2 WEEKS
     Dates: start: 20190806

REACTIONS (9)
  - Blood uric acid increased [Unknown]
  - Renal pain [Unknown]
  - Renal disorder [Unknown]
  - Palpitations [Unknown]
  - Dysphonia [Recovering/Resolving]
  - Asthenia [Recovering/Resolving]
  - Thrombosis [Recovering/Resolving]
  - Gout [Unknown]
  - Ear swelling [Unknown]
